FAERS Safety Report 25081277 (Version 2)
Quarter: 2025Q2

REPORT INFORMATION
  Report Type: Spontaneous
  Country: CA (occurrence: CA)
  Receive Date: 20250316
  Receipt Date: 20250423
  Transmission Date: 20250716
  Serious: Yes (Disabling, Other)
  Sender: TEVA
  Company Number: CA-TEVA-VS-3307672

PATIENT
  Age: 32 Year
  Sex: Female

DRUGS (2)
  1. AJOVY [Suspect]
     Active Substance: FREMANEZUMAB-VFRM
     Indication: Migraine
     Dosage: 150MG/1ML/225MG/1.5ML
     Route: 065
     Dates: start: 2024
  2. AJOVY [Suspect]
     Active Substance: FREMANEZUMAB-VFRM
     Dosage: SWITCHED FROM A MONTHLY DOSAGE OF AJOVY TO A QUARTERLY DOSAGE
     Route: 065
     Dates: start: 20250109

REACTIONS (13)
  - Migraine [Not Recovered/Not Resolved]
  - Lower respiratory tract infection [Unknown]
  - Syncope [Recovered/Resolved]
  - Ear infection [Unknown]
  - Fatigue [Unknown]
  - Pharyngitis streptococcal [Unknown]
  - Impaired work ability [Unknown]
  - Respiratory disorder [Unknown]
  - Disability [Unknown]
  - General physical health deterioration [Unknown]
  - Insurance issue [Unknown]
  - Product dose omission issue [Unknown]
  - Illness [Unknown]

NARRATIVE: CASE EVENT DATE: 20240101
